FAERS Safety Report 25958253 (Version 1)
Quarter: 2025Q4

REPORT INFORMATION
  Report Type: Spontaneous
  Country: US (occurrence: US)
  Receive Date: 20251024
  Receipt Date: 20251024
  Transmission Date: 20260117
  Serious: Yes (Disabling, Other)
  Sender: NOVO NORDISK
  Company Number: US-NOVOPROD-1533494

PATIENT
  Age: 53 Year
  Sex: Female

DRUGS (1)
  1. FIASP [Suspect]
     Active Substance: INSULIN ASPART
     Indication: Type 1 diabetes mellitus
     Dosage: USES 5 VIALS IN 3 MONTHS
     Route: 058
     Dates: start: 201801

REACTIONS (6)
  - Intervertebral disc protrusion [Recovering/Resolving]
  - Exostosis [Recovering/Resolving]
  - Spinal instability [Recovering/Resolving]
  - Nerve injury [Unknown]
  - Procedural pain [Unknown]
  - Hypoaesthesia [Unknown]

NARRATIVE: CASE EVENT DATE: 20180601
